FAERS Safety Report 9207763 (Version 1)
Quarter: 2013Q2

REPORT INFORMATION
  Report Type: Spontaneous
  Country: US (occurrence: US)
  Receive Date: 20130403
  Receipt Date: 20130403
  Transmission Date: 20140414
  Serious: Yes (Other)
  Sender: FDA-Public Use
  Company Number: US-ABBOTT-13P-163-1070677-00

PATIENT
  Age: 66 Year
  Sex: Male
  Weight: 83.99 kg

DRUGS (6)
  1. ANDROGEL [Suspect]
     Indication: BLOOD TESTOSTERONE DECREASED
     Dosage: 1 PUMP
     Route: 061
     Dates: start: 201207, end: 201210
  2. ANDROGEL [Suspect]
     Dosage: 2 PUMPS
     Route: 061
     Dates: start: 201210, end: 201303
  3. METFORMIN [Concomitant]
     Indication: DIABETES MELLITUS
     Dosage: UNKNOWN
     Dates: end: 201212
  4. LOSARTIN [Concomitant]
     Indication: HYPERTENSION
     Dosage: UNKNOWN
     Dates: end: 201212
  5. CRESTOR [Concomitant]
     Indication: BLOOD CHOLESTEROL INCREASED
     Dosage: UNKNOWN
     Dates: end: 201212
  6. VITAMIN D [Concomitant]
     Indication: VITAMIN SUPPLEMENTATION

REACTIONS (9)
  - Renal colic [Recovered/Resolved]
  - Flank pain [Recovered/Resolved]
  - Impaired work ability [Recovered/Resolved]
  - Weight decreased [Recovered/Resolved]
  - Red blood cell count increased [Recovered/Resolved]
  - Polycythaemia [Recovered/Resolved]
  - Pruritus generalised [Recovered/Resolved]
  - Hypoaesthesia [Recovered/Resolved]
  - Anxiety [Recovered/Resolved]
